FAERS Safety Report 23861414 (Version 1)
Quarter: 2024Q2

REPORT INFORMATION
  Report Type: Spontaneous
  Country: GB (occurrence: GB)
  Receive Date: 20240516
  Receipt Date: 20240516
  Transmission Date: 20240716
  Serious: Yes (Other)
  Sender: FDA-Public Use
  Company Number: None

PATIENT
  Age: 58 Year
  Sex: Female
  Weight: 58 kg

DRUGS (5)
  1. RAMIPRIL [Suspect]
     Active Substance: RAMIPRIL
     Route: 065
     Dates: start: 20240402
  2. ATORVASTATIN [Concomitant]
     Active Substance: ATORVASTATIN
     Dosage: AT NIGHT
     Dates: start: 20230517
  3. LOSARTAN [Concomitant]
     Active Substance: LOSARTAN
     Dates: start: 20240503
  4. OTOMIZE [Concomitant]
     Dosage: TIME INTERVAL: 0.33333333 DAYS: SPRAY
     Dates: start: 20240226, end: 20240304
  5. AMITRIPTYLINE HYDROCHLORIDE [Concomitant]
     Active Substance: AMITRIPTYLINE HYDROCHLORIDE
     Dates: start: 20231212

REACTIONS (1)
  - Cough [Recovering/Resolving]
